FAERS Safety Report 6642513-8 (Version None)
Quarter: 2010Q1

REPORT INFORMATION
  Report Type: 
  Country: None (occurrence: None)
  Receive Date: 20100319
  Receipt Date: 20100317
  Transmission Date: 20100710
  Serious: Yes (Life-Threatening)
  Sender: FDA-Public Use
  Company Number: JP-ASTRAZENECA-2010SE07952

PATIENT
  Age: 26065 Day
  Sex: Male

DRUGS (10)
  1. IRESSA [Suspect]
     Indication: LUNG ADENOCARCINOMA
     Route: 048
     Dates: start: 20100106, end: 20100217
  2. AMLODIPINE [Concomitant]
     Route: 048
     Dates: start: 20090629
  3. LANIRAPID [Concomitant]
     Route: 048
     Dates: start: 20090629
  4. ASPIRIN [Concomitant]
     Route: 048
     Dates: start: 20090629
  5. CANDESARTAN CILEXETIL [Concomitant]
     Route: 048
     Dates: start: 20090629
  6. ROHYPNOL [Concomitant]
     Route: 048
     Dates: start: 20090629
  7. AMARYL [Concomitant]
     Route: 048
     Dates: start: 20090629
  8. GASCON [Concomitant]
     Route: 048
     Dates: start: 20090817
  9. PARIET [Concomitant]
     Route: 048
     Dates: start: 20090928
  10. GLUFAST [Concomitant]
     Route: 048
     Dates: start: 20091102

REACTIONS (1)
  - LUNG DISORDER [None]
